FAERS Safety Report 25287040 (Version 1)
Quarter: 2025Q2

REPORT INFORMATION
  Report Type: Spontaneous
  Country: JP (occurrence: JP)
  Receive Date: 20250509
  Receipt Date: 20250509
  Transmission Date: 20250716
  Serious: Yes (Other)
  Sender: MERCK SHARP & DOHME LLC
  Company Number: JP-MSD-M2025-01971

PATIENT
  Age: 51 Year
  Sex: Male

DRUGS (1)
  1. KEYTRUDA [Suspect]
     Active Substance: PEMBROLIZUMAB
     Indication: Colon cancer
     Dosage: 2 COURSES
     Route: 041
     Dates: start: 202412, end: 202501

REACTIONS (1)
  - Hypothalamo-pituitary disorder [Recovered/Resolved]

NARRATIVE: CASE EVENT DATE: 20250101
